FAERS Safety Report 5936207-1 (Version None)
Quarter: 2008Q4

REPORT INFORMATION
  Report Type: 
  Country: None (occurrence: None)
  Receive Date: 20081030
  Receipt Date: 20081028
  Transmission Date: 20090506
  Serious: Yes (Life-Threatening, Hospitalization)
  Sender: FDA-Public Use
  Company Number: IE-SANOFI-SYNTHELABO-A01200813074

PATIENT
  Age: 29 Year
  Sex: Female

DRUGS (2)
  1. GABAPENTIN [Concomitant]
     Indication: NEURALGIA
     Route: 065
  2. HYDROXYCHLOROQUINE [Suspect]
     Indication: SJOGREN'S SYNDROME
     Route: 048

REACTIONS (10)
  - BLOOD ALBUMIN DECREASED [None]
  - CORNEAL SCAR [None]
  - LYMPHOCYTE COUNT DECREASED [None]
  - PSEUDOMONAL SEPSIS [None]
  - SCAR [None]
  - SEPSIS [None]
  - SUNBURN [None]
  - TACHYCARDIA [None]
  - TOXIC EPIDERMAL NECROLYSIS [None]
  - WHITE BLOOD CELL COUNT DECREASED [None]
